FAERS Safety Report 4470140-X (Version None)
Quarter: 2004Q3

REPORT INFORMATION
  Report Type: 
  Country: None (occurrence: None)
  Receive Date: 20040910
  Receipt Date: 20040728
  Transmission Date: 20050211
  Serious: No
  Sender: FDA-Public Use
  Company Number: 2004226543US

PATIENT
  Age: 76 Year
  Sex: Female

DRUGS (5)
  1. BEXTRA [Suspect]
     Indication: OSTEOARTHRITIS
     Dosage: 10 MG, BID, ORAL
     Route: 048
     Dates: start: 20040501
  2. COUMADIN [Concomitant]
  3. BENAZEPRIL HCL [Concomitant]
  4. VITAMINS NOS (VITAMINS NOS) [Concomitant]
  5. MINERAL TAB [Concomitant]

REACTIONS (2)
  - HOT FLUSH [None]
  - INTERNATIONAL NORMALISED RATIO DECREASED [None]
